FAERS Safety Report 4859996-6 (Version None)
Quarter: 2005Q4

REPORT INFORMATION
  Report Type: 
  Country: None (occurrence: None)
  Receive Date: 20051215
  Receipt Date: 20051202
  Transmission Date: 20060501
  Serious: Yes (Disabling, Other)
  Sender: FDA-Public Use
  Company Number: 2005155729

PATIENT
  Age: 35 Year
  Sex: Female
  Weight: 54.4316 kg

DRUGS (13)
  1. DETROL LA [Suspect]
     Indication: HYPERTONIC BLADDER
     Dosage: 10 MG (2 MG),
     Dates: start: 20050301
  2. OXYBUTYNIN CHLORIDE [Suspect]
     Indication: HYPERTONIC BLADDER
     Dosage: (3 IN 1 D),
     Dates: start: 20050101, end: 20050101
  3. MACROBID [Concomitant]
  4. MULTIVITAMIN [Concomitant]
  5. VITAMIN C (VITAMIN C) [Concomitant]
  6. VITAMIN B (VITAMIN B) [Concomitant]
  7. VITAMIN D [Concomitant]
  8. CALCIUM (CALCIUM) [Concomitant]
  9. SENOKOT-S (DOCUSATE SODIUM, SENNA) [Concomitant]
  10. LOSEC (OMEPRAZOLE) [Concomitant]
  11. CLONAZEPAM [Concomitant]
  12. SULFATRIM (SULFAMETHOXAZOLE, TRIMETHOPRIM) [Concomitant]
  13. SEROQUEL [Concomitant]

REACTIONS (8)
  - BIPOLAR DISORDER [None]
  - CONDITION AGGRAVATED [None]
  - DRUG INEFFECTIVE [None]
  - INFECTION [None]
  - PELVIC PAIN [None]
  - POLLAKIURIA [None]
  - SENSORY LOSS [None]
  - STOMACH DISCOMFORT [None]
